FAERS Safety Report 15061260 (Version 1)
Quarter: 2018Q2

REPORT INFORMATION
  Report Type: Spontaneous
  Country: US (occurrence: US)
  Receive Date: 20180625
  Receipt Date: 20180625
  Transmission Date: 20180711
  Serious: No
  Sender: FDA-Public Use
  Company Number: US-ROCHE-2057176

PATIENT
  Sex: Female

DRUGS (1)
  1. XELODA [Suspect]
     Active Substance: CAPECITABINE
     Indication: BREAST CANCER
     Dosage: 3 TABS IN MORNING AND 2 TABS IN EVENING
     Route: 048
     Dates: start: 20160325

REACTIONS (3)
  - Skin fissures [Unknown]
  - Skin exfoliation [Unknown]
  - Fatigue [Unknown]
